FAERS Safety Report 7357047-5 (Version None)
Quarter: 2011Q1

REPORT INFORMATION
  Report Type: 
  Country: None (occurrence: None)
  Receive Date: 20110311
  Receipt Date: 20110311
  Transmission Date: 20110831
  Serious: Yes (Hospitalization)
  Sender: FDA-Public Use
  Company Number: None

PATIENT
  Age: 66 Year
  Sex: Male
  Weight: 134 kg

DRUGS (4)
  1. INDOMETHACIN [Suspect]
     Indication: PAIN
     Dosage: 50 MG BID PO ; 325 MG EVERY DAY PO
     Route: 048
     Dates: start: 20071015, end: 20100914
  2. INDOMETHACIN [Suspect]
     Indication: CARDIOVASCULAR DISORDER
     Dosage: 50 MG BID PO ; 325 MG EVERY DAY PO
     Route: 048
     Dates: start: 20071015, end: 20100914
  3. INDOMETHACIN [Suspect]
     Indication: PAIN
     Dosage: 50 MG BID PO ; 325 MG EVERY DAY PO
     Route: 048
     Dates: end: 20100914
  4. INDOMETHACIN [Suspect]
     Indication: CARDIOVASCULAR DISORDER
     Dosage: 50 MG BID PO ; 325 MG EVERY DAY PO
     Route: 048
     Dates: end: 20100914

REACTIONS (2)
  - GASTROINTESTINAL HAEMORRHAGE [None]
  - HAEMORRHAGE [None]
